FAERS Safety Report 17798578 (Version 1)
Quarter: 2020Q2

REPORT INFORMATION
  Report Type: Spontaneous
  Country: CO (occurrence: CO)
  Receive Date: 20200518
  Receipt Date: 20200518
  Transmission Date: 20200714
  Serious: Yes (Hospitalization)
  Sender: FDA-Public Use
  Company Number: CO-PFIZER INC-2020195473

PATIENT
  Sex: Male

DRUGS (1)
  1. XALKORI [Suspect]
     Active Substance: CRIZOTINIB
     Dosage: 250 MG
     Route: 048

REACTIONS (4)
  - Fluid retention [Unknown]
  - Phlebitis [Unknown]
  - Coagulopathy [Unknown]
  - Tension [Recovered/Resolved]

NARRATIVE: CASE EVENT DATE: 20200505
